FAERS Safety Report 12281962 (Version 6)
Quarter: 2019Q3

REPORT INFORMATION
  Report Type: Report from Study
  Country: US (occurrence: US)
  Receive Date: 20160419
  Receipt Date: 20190822
  Transmission Date: 20191004
  Serious: Yes (Death, Hospitalization, Other)
  Sender: FDA-Public Use
  Company Number: US-ASTELLAS-2015US046100

PATIENT
  Age: 65 Year
  Sex: Male

DRUGS (3)
  1. ZOLADEX [Concomitant]
     Active Substance: GOSERELIN ACETATE
     Indication: CHEMOTHERAPY
     Dosage: UNK UNK, UNKNOWN FREQ.
     Route: 065
     Dates: start: 20130711
  2. ENZALUTAMIDE [Suspect]
     Active Substance: ENZALUTAMIDE
     Indication: PROSTATE CANCER
     Route: 048
     Dates: start: 20150202
  3. XGEVA [Concomitant]
     Active Substance: DENOSUMAB
     Indication: CHEMOTHERAPY
     Dosage: UNK UNK, UNKNOWN FREQ.
     Route: 065
     Dates: start: 20150105

REACTIONS (13)
  - Productive cough [Recovered/Resolved]
  - Cough [Recovering/Resolving]
  - Dyspnoea [Not Recovered/Not Resolved]
  - Fatigue [Unknown]
  - Vision blurred [Unknown]
  - Hypertension [Recovered/Resolved]
  - Sputum discoloured [Recovered/Resolved]
  - Decreased appetite [Unknown]
  - Death [Fatal]
  - Abdominal pain upper [Unknown]
  - Dyspnoea [Recovered/Resolved]
  - General physical health deterioration [Unknown]
  - Depressed mood [Unknown]

NARRATIVE: CASE EVENT DATE: 20160404
